FAERS Safety Report 5941573-7 (Version None)
Quarter: 2008Q4

REPORT INFORMATION
  Report Type: 
  Country: None (occurrence: None)
  Receive Date: 20081104
  Receipt Date: 20081104
  Transmission Date: 20090506
  Serious: Yes (Hospitalization, Disabling)
  Sender: FDA-Public Use
  Company Number: None

PATIENT
  Age: 73 Year
  Sex: Female

DRUGS (1)
  1. PROCRIT [Suspect]
     Indication: ANAEMIA
     Dosage: 4000 UNITS TWICE A WEEK SQ
     Route: 058

REACTIONS (1)
  - DEEP VEIN THROMBOSIS [None]
